FAERS Safety Report 4747587-7 (Version None)
Quarter: 2005Q3

REPORT INFORMATION
  Report Type: 
  Country: None (occurrence: None)
  Receive Date: 20050818
  Receipt Date: 20041013
  Transmission Date: 20060218
  Serious: No
  Sender: FDA-Public Use
  Company Number: US-BRISTOL-MYERS SQUIBB COMPANY-12732061

PATIENT
  Age: 76 Year
  Sex: Male

DRUGS (2)
  1. TEQUIN [Suspect]
     Indication: CATARACT OPERATION
     Route: 031
     Dates: start: 20040929, end: 20040929
  2. KENALOG [Concomitant]
     Route: 031
     Dates: start: 20040929, end: 20040929

REACTIONS (3)
  - EYE INFECTION [None]
  - EYE PAIN [None]
  - VISUAL ACUITY REDUCED [None]
